FAERS Safety Report 10222043 (Version 2)
Quarter: 2014Q2

REPORT INFORMATION
  Report Type: Spontaneous
  Country: MX (occurrence: MX)
  Receive Date: 20140606
  Receipt Date: 20140606
  Transmission Date: 20141212
  Serious: No
  Sender: FDA-Public Use
  Company Number: MX-BIOMARINAP-MX-2014-102524

PATIENT
  Age: 3 Year
  Sex: Female

DRUGS (1)
  1. NAGLAZYME [Suspect]
     Indication: PRODUCT USED FOR UNKNOWN INDICATION
     Dosage: 10 MG, QW
     Route: 041
     Dates: start: 20140113

REACTIONS (6)
  - Pharyngotonsillitis [Recovered/Resolved]
  - Nasal congestion [Recovered/Resolved]
  - Mouth breathing [Recovered/Resolved]
  - Pharyngeal erythema [Recovered/Resolved]
  - Pharyngeal oedema [Recovered/Resolved]
  - Pharyngeal exudate [Recovered/Resolved]
